FAERS Safety Report 7451092-7 (Version None)
Quarter: 2011Q2

REPORT INFORMATION
  Report Type: 
  Country: None (occurrence: None)
  Receive Date: 20110429
  Receipt Date: 20110429
  Transmission Date: 20111010
  Serious: Yes (Hospitalization)
  Sender: FDA-Public Use
  Company Number: None

PATIENT
  Age: 67 Year
  Sex: Male
  Weight: 94.9 kg

DRUGS (13)
  1. CARDIZEM LA [Concomitant]
  2. COLCHICINE [Concomitant]
  3. ASPIRIN [Suspect]
     Indication: ATRIAL FIBRILLATION
     Dosage: 81MG DAILY PO CHRONIC
     Route: 048
  4. APIDRA [Concomitant]
  5. COUMADIN [Suspect]
     Indication: ATRIAL FIBRILLATION
     Dosage: 7.5 MG DAILY PO CHRONIC
     Route: 048
  6. LANTUS [Concomitant]
  7. CLONIDINE [Concomitant]
  8. ACETAMINOPHEN [Concomitant]
  9. TOPROL-XL [Concomitant]
  10. LANOXIN [Concomitant]
  11. NEXIUM [Concomitant]
  12. LASIX [Concomitant]
  13. ZETIA [Concomitant]

REACTIONS (4)
  - SUBDURAL HAEMATOMA [None]
  - CEREBRAL INFARCTION [None]
  - HAEMODIALYSIS [None]
  - BLOOD PRESSURE INADEQUATELY CONTROLLED [None]
